FAERS Safety Report 7652724-0 (Version None)
Quarter: 2011Q3

REPORT INFORMATION
  Report Type: 
  Country: None (occurrence: None)
  Receive Date: 20110803
  Receipt Date: 20110308
  Transmission Date: 20111222
  Serious: Yes (Hospitalization, Other)
  Sender: FDA-Public Use
  Company Number: US-BAYER-US-2007-005910

PATIENT
  Age: 41 Year
  Sex: Female
  Weight: 70 kg

DRUGS (17)
  1. BETASERON [Suspect]
     Dosage: EVERY THIRD DAY
     Route: 058
     Dates: start: 20100521
  2. NEXIUM [Concomitant]
     Dosage: 80 MG, B.MEAL
     Route: 048
  3. DETROL LA [Concomitant]
     Dosage: 40 MG, BED T.
  4. METHIMAZOLE [Concomitant]
     Dosage: 10 MG, BED T.
  5. CALCIUM ACETATE [Concomitant]
  6. GLATIRAMER ACETATE [Concomitant]
     Dosage: 20 MG, UNK
  7. BACLOFEN [Concomitant]
     Dosage: 10 MG, 2X/DAY
  8. BETASERON [Suspect]
     Route: 058
     Dates: end: 20070218
  9. FLUOXETINE HYDROCHLORIDE [Concomitant]
     Dosage: 60 MG, 2X/DAY
     Route: 048
  10. LIDOCAINE [Concomitant]
     Indication: MUSCLE SPASMS
     Dosage: UNK, ALT EVERY 12H
     Route: 003
  11. CYANOCOBALAMIN [Concomitant]
  12. BETASERON [Suspect]
     Route: 058
     Dates: start: 20070112, end: 20070101
  13. LORAZEPAM [Concomitant]
     Dosage: 1 MG, 2X/DAY
  14. BETASERON [Suspect]
     Indication: RELAPSING-REMITTING MULTIPLE SCLEROSIS
     Route: 058
     Dates: start: 19970101
  15. BETASERON [Suspect]
     Indication: SECONDARY PROGRESSIVE MULTIPLE SCLEROSIS
     Route: 058
     Dates: start: 20000102, end: 20000616
  16. BETASERON [Suspect]
     Route: 058
     Dates: start: 20070101, end: 20070127
  17. TOPIRAMATE [Concomitant]
     Dosage: 200 MG, BED T.
     Route: 048

REACTIONS (24)
  - ASTHENIA [None]
  - GASTRIC ULCER [None]
  - INTESTINAL OPERATION [None]
  - FATIGUE [None]
  - VITAMIN B12 DECREASED [None]
  - MUSCLE SPASMS [None]
  - PAIN [None]
  - UROSTOMY [None]
  - PYREXIA [None]
  - LOCAL SWELLING [None]
  - DYSARTHRIA [None]
  - LYMPHADENOPATHY [None]
  - FUNCTIONAL GASTROINTESTINAL DISORDER [None]
  - BACTERIAL INFECTION [None]
  - BLADDER SPASM [None]
  - HYPERSOMNIA [None]
  - HYPOKALAEMIA [None]
  - URTICARIA [None]
  - MULTIPLE SCLEROSIS [None]
  - HEADACHE [None]
  - DYSPHAGIA [None]
  - ANAEMIA [None]
  - OROPHARYNGEAL BLISTERING [None]
  - INFLUENZA LIKE ILLNESS [None]
